FAERS Safety Report 8470939-9 (Version None)
Quarter: 2012Q2

REPORT INFORMATION
  Report Type: 
  Country: None (occurrence: None)
  Receive Date: 20120620
  Receipt Date: 20120611
  Transmission Date: 20120825
  Serious: Yes (Hospitalization, Other)
  Sender: FDA-Public Use
  Company Number: 2012MA007193

PATIENT
  Age: 56 Year
  Sex: Male

DRUGS (4)
  1. FLUTICASONE PROPIONATE/SALMETEROL [Concomitant]
  2. CO-DYDRAMOL (PARAMOL-118) [Suspect]
     Indication: INTENTIONAL OVERDOSE
     Dosage: 20 DF;X1;PO
     Route: 048
  3. SPIRIVA [Concomitant]
  4. TRAMADOL HYDROCHLORIDE [Suspect]
     Indication: INTENTIONAL OVERDOSE
     Dosage: 3000 MG;X1 ;PO
     Route: 048

REACTIONS (9)
  - SOMNOLENCE [None]
  - AGITATION [None]
  - HEART RATE INCREASED [None]
  - INAPPROPRIATE ANTIDIURETIC HORMONE SECRETION [None]
  - RESPIRATORY RATE DECREASED [None]
  - RESPIRATORY FAILURE [None]
  - DRUG INTERACTION [None]
  - MIOSIS [None]
  - MULTIPLE DRUG OVERDOSE INTENTIONAL [None]
